FAERS Safety Report 16019591 (Version 1)
Quarter: 2019Q1

REPORT INFORMATION
  Report Type: Spontaneous
  Country: US (occurrence: US)
  Receive Date: 20190228
  Receipt Date: 20190228
  Transmission Date: 20190418
  Serious: No
  Sender: FDA-Public Use
  Company Number: US-TEVA-2019-US-1007987

PATIENT
  Age: 38 Year
  Sex: Female

DRUGS (1)
  1. ANTABUSE [Suspect]
     Active Substance: DISULFIRAM
     Indication: ALCOHOL PROBLEM
     Dates: start: 201809

REACTIONS (1)
  - Acne cystic [Unknown]

NARRATIVE: CASE EVENT DATE: 201809
